FAERS Safety Report 24462707 (Version 4)
Quarter: 2025Q1

REPORT INFORMATION
  Report Type: Spontaneous
  Country: JP (occurrence: JP)
  Receive Date: 20241018
  Receipt Date: 20250331
  Transmission Date: 20250409
  Serious: Yes (Life-Threatening, Hospitalization, Other)
  Sender: ALEXION PHARMACEUTICALS
  Company Number: JP-AstraZeneca-CH-00724427A

PATIENT
  Age: 69 Year
  Weight: 52 kg

DRUGS (3)
  1. ULTOMIRIS [Suspect]
     Active Substance: RAVULIZUMAB-CWVZ
     Indication: Paroxysmal nocturnal haemoglobinuria
     Dosage: 3000 MILLIGRAM, Q8W
  2. EVENITY [Concomitant]
     Active Substance: ROMOSOZUMAB-AQQG
     Indication: Osteoporosis
     Dosage: 210 MILLIGRAM, QMONTH
  3. ELDECALCITOL [Concomitant]
     Active Substance: ELDECALCITOL
     Indication: Osteoporosis
     Dosage: 0.75 MICROGRAM, QD

REACTIONS (7)
  - Disseminated intravascular coagulation [Recovering/Resolving]
  - Haemolysis [Unknown]
  - Meningococcal sepsis [Recovering/Resolving]
  - Renal disorder [Unknown]
  - Upper respiratory tract inflammation [Unknown]
  - Headache [Unknown]
  - Rash erythematous [Unknown]
